FAERS Safety Report 9054238 (Version 1)
Quarter: 2013Q1

REPORT INFORMATION
  Report Type: Spontaneous
  Country: US (occurrence: US)
  Receive Date: 20130208
  Receipt Date: 20130208
  Transmission Date: 20140127
  Serious: Yes (Other)
  Sender: FDA-Public Use
  Company Number: US-GLAXOSMITHKLINE-A1004414A

PATIENT
  Age: 64 Year
  Sex: Female
  Weight: 99.5 kg

DRUGS (8)
  1. TYKERB [Suspect]
     Indication: BREAST CANCER STAGE IV
     Dosage: 1250MG PER DAY
     Route: 048
     Dates: start: 20121110
  2. DECADRON [Concomitant]
  3. ZOFRAN [Concomitant]
  4. HERCEPTIN [Concomitant]
  5. IMODIUM AD [Concomitant]
  6. TYLENOL EXTRA STRENGTH [Concomitant]
  7. BENADRYL [Concomitant]
  8. LOMOTIL [Concomitant]

REACTIONS (7)
  - Malignant neoplasm progression [Unknown]
  - Dizziness [Recovering/Resolving]
  - Foreign body [Recovering/Resolving]
  - Diarrhoea [Unknown]
  - Nausea [Unknown]
  - Influenza [Unknown]
  - Activities of daily living impaired [Unknown]
